FAERS Safety Report 16726577 (Version 2)
Quarter: 2019Q4

REPORT INFORMATION
  Report Type: Spontaneous
  Country: US (occurrence: US)
  Receive Date: 20190821
  Receipt Date: 20191011
  Transmission Date: 20200122
  Serious: No
  Sender: FDA-Public Use
  Company Number: US-PFIZER INC-2019357701

PATIENT
  Age: 75 Year
  Sex: Female
  Weight: 63 kg

DRUGS (2)
  1. IBRANCE [Suspect]
     Active Substance: PALBOCICLIB
     Indication: BREAST CANCER FEMALE
     Dosage: 125 MG, 1X/DAY
     Dates: start: 20190712
  2. ARIMIDEX [Concomitant]
     Active Substance: ANASTROZOLE
     Dosage: UNK
     Dates: start: 20190712

REACTIONS (2)
  - Full blood count decreased [Not Recovered/Not Resolved]
  - Full blood count abnormal [Not Recovered/Not Resolved]

NARRATIVE: CASE EVENT DATE: 2019
